FAERS Safety Report 22157144 (Version 2)
Quarter: 2023Q2

REPORT INFORMATION
  Report Type: Spontaneous
  Country: FR (occurrence: FR)
  Receive Date: 20230330
  Receipt Date: 20230615
  Transmission Date: 20230721
  Serious: Yes (Hospitalization)
  Sender: FDA-Public Use
  Company Number: FR-TEVA-2023-FR-2870781

PATIENT
  Age: 59 Year
  Sex: Female

DRUGS (1)
  1. AMIODARONE [Suspect]
     Active Substance: AMIODARONE
     Indication: Atrial fibrillation
     Route: 065

REACTIONS (4)
  - Graves^ disease [Recovering/Resolving]
  - Cardiogenic shock [Recovered/Resolved]
  - Cardiac failure [Unknown]
  - Mitral valve disease mixed [Unknown]

NARRATIVE: CASE EVENT DATE: 20210801
